FAERS Safety Report 22339442 (Version 4)
Quarter: 2024Q3

REPORT INFORMATION
  Report Type: Spontaneous
  Country: US (occurrence: US)
  Receive Date: 20230518
  Receipt Date: 20240731
  Transmission Date: 20241017
  Serious: Yes (Other)
  Sender: PFIZER
  Company Number: US-PFIZER INC-PV202300086940

PATIENT
  Age: 35 Year
  Sex: Female

DRUGS (1)
  1. OXBRYTA [Suspect]
     Active Substance: VOXELOTOR
     Indication: Sickle cell disease
     Dosage: UNK
     Dates: start: 20230115, end: 20230117

REACTIONS (5)
  - Paraesthesia [Unknown]
  - Skin burning sensation [Unknown]
  - Rash pruritic [Recovering/Resolving]
  - Skin discolouration [Unknown]
  - Urticaria [Unknown]

NARRATIVE: CASE EVENT DATE: 20230101
